FAERS Safety Report 9576719 (Version 1)
Quarter: 2013Q4

REPORT INFORMATION
  Report Type: Spontaneous
  Country: US (occurrence: US)
  Receive Date: 20131001
  Receipt Date: 20131001
  Transmission Date: 20140711
  Serious: No
  Sender: FDA-Public Use
  Company Number: US-AMGEN-USASP2013004555

PATIENT
  Age: 58 Year
  Sex: Female
  Weight: 78.91 kg

DRUGS (10)
  1. ENBREL [Suspect]
     Indication: PRODUCT USED FOR UNKNOWN INDICATION
     Dosage: 50 MG, QWK
     Route: 058
  2. PLAQUENIL                          /00072602/ [Concomitant]
     Dosage: 200 MG, UNK
  3. ZYRTEC [Concomitant]
     Dosage: 10 MG, UNK
  4. ATENOLOL [Concomitant]
     Dosage: 25 MG, UNK
  5. NEXIUM                             /01479302/ [Concomitant]
     Dosage: 20 MG, UNK
  6. IBUPROFEN [Concomitant]
     Dosage: 200 MG, UNK
  7. TRIAMTERENE AND HYDROCHLOROTHIAZID [Concomitant]
     Dosage: 37.5-25
  8. FISH OIL [Concomitant]
     Dosage: UNK
  9. CALCIUM [Concomitant]
     Dosage: 500 UNK, UNK
  10. FIORINAL                           /00090401/ [Concomitant]
     Dosage: UNK

REACTIONS (1)
  - Injection site erythema [Unknown]
